FAERS Safety Report 14605805 (Version 8)
Quarter: 2018Q4

REPORT INFORMATION
  Report Type: Report from Study
  Country: None (occurrence: US)
  Receive Date: 20180306
  Receipt Date: 20181219
  Transmission Date: 20190204
  Serious: Yes (Death, Hospitalization, Other)
  Sender: FDA-Public Use
  Company Number: US-ABBVIE-18K-163-2275639-00

PATIENT
  Age: 58 Year
  Sex: Male

DRUGS (1)
  1. HUMIRA [Suspect]
     Active Substance: ADALIMUMAB
     Indication: PSORIASIS
     Route: 058
     Dates: start: 20160616, end: 20180801

REACTIONS (9)
  - Discomfort [Unknown]
  - Renal failure [Unknown]
  - Aphasia [Unknown]
  - Hepatic failure [Unknown]
  - Liver transplant [Fatal]
  - Localised oedema [Unknown]
  - Hepatic cirrhosis [Not Recovered/Not Resolved]
  - Liver disorder [Unknown]
  - Fluid retention [Unknown]

NARRATIVE: CASE EVENT DATE: 201802
